FAERS Safety Report 13839798 (Version 1)
Quarter: 2017Q3

REPORT INFORMATION
  Report Type: Report from Study
  Country: JP (occurrence: JP)
  Receive Date: 20170807
  Receipt Date: 20170807
  Transmission Date: 20171127
  Serious: Yes (Other)
  Sender: FDA-Public Use
  Company Number: JP-PFIZER INC-2017337734

PATIENT

DRUGS (4)
  1. CISPLATIN. [Suspect]
     Active Substance: CISPLATIN
     Indication: NON-SMALL CELL LUNG CANCER
     Dosage: 60 MG/M2, CYCLIC (60-MIN. IV ON DAY1, CYCLES WERE REPEATED EVERY 4 WEEKS FOR MORE THAN 2 CYCLES)
     Route: 042
  2. IRINOTECAN HCL [Suspect]
     Active Substance: IRINOTECAN HYDROCHLORIDE
     Indication: NON-SMALL CELL LUNG CANCER
     Dosage: 50 MG/M2, CYCLIC (90MIN. ON DAYS 1, 8, AND 15, CYCLES REPEATED EVERY 4 WEEKS FOR MORE THAN 2 CYCLES)
     Route: 042
  3. ETOPOSIDE. [Suspect]
     Active Substance: ETOPOSIDE
     Indication: NON-SMALL CELL LUNG CANCER
     Dosage: 50 MG/M2, CYCLIC (CYCLES WERE REPEATED EVERY 4 WEEKS FOR MORE THAN 2 CYCLES, IV ON DAY1;EN3)
     Route: 042
  4. G-CSF [Concomitant]
     Active Substance: GRANULOCYTE COLONY-STIMULATING FACTOR NOS
     Dosage: 1-2 /L G/KG SUBQ DAY 5- 14

REACTIONS (1)
  - Liver disorder [Unknown]
